FAERS Safety Report 18277789 (Version 1)
Quarter: 2020Q3

REPORT INFORMATION
  Report Type: Spontaneous
  Country: US (occurrence: US)
  Receive Date: 20200917
  Receipt Date: 20200917
  Transmission Date: 20201103
  Serious: Yes (Hospitalization)
  Sender: FDA-Public Use
  Company Number: None

PATIENT
  Sex: Male

DRUGS (9)
  1. KOMBIGLYZE XR [Concomitant]
     Active Substance: METFORMIN HYDROCHLORIDE\SAXAGLIPTIN HYDROCHLORIDE
  2. OXYCODONE [Concomitant]
     Active Substance: OXYCODONE
  3. SHINGRIX [Concomitant]
     Active Substance: RECOMBINANT VARICELLA ZOSTER VIRUS (VZV) GLYCOPROTEIN E
  4. CAPECITABINE. [Suspect]
     Active Substance: CAPECITABINE
     Indication: GALLBLADDER CANCER
     Route: 048
     Dates: start: 20200603
  5. GLIMEPIRIDE. [Concomitant]
     Active Substance: GLIMEPIRIDE
  6. XELODA [Concomitant]
     Active Substance: CAPECITABINE
  7. ATORVASTATIN [Concomitant]
     Active Substance: ATORVASTATIN
  8. CONTOUR [Concomitant]
  9. DOCUSATE COD [Concomitant]

REACTIONS (4)
  - Blood glucose increased [None]
  - Gait inability [None]
  - Balance disorder [None]
  - Therapy cessation [None]
